FAERS Safety Report 18007470 (Version 2)
Quarter: 2020Q3

REPORT INFORMATION
  Report Type: Spontaneous
  Country: MX (occurrence: MX)
  Receive Date: 20200710
  Receipt Date: 20200721
  Transmission Date: 20201103
  Serious: Yes (Other)
  Sender: FDA-Public Use
  Company Number: MX-ASTRAZENECA-2020SE85576

PATIENT
  Age: 70 Year
  Sex: Male
  Weight: 98 kg

DRUGS (2)
  1. ROSUVASTATINA [Concomitant]
     Active Substance: ROSUVASTATIN
     Indication: BLOOD CHOLESTEROL ABNORMAL
     Route: 065
  2. TAGRISSO [Suspect]
     Active Substance: OSIMERTINIB
     Indication: LUNG NEOPLASM MALIGNANT
     Route: 048
     Dates: start: 20200509

REACTIONS (11)
  - Obstructive airways disorder [Recovered/Resolved]
  - Nausea [Not Recovered/Not Resolved]
  - Acquired gene mutation [Unknown]
  - Drug ineffective [Unknown]
  - Peripheral swelling [Unknown]
  - Malnutrition [Unknown]
  - Asphyxia [Unknown]
  - Malaise [Unknown]
  - Muscle atrophy [Unknown]
  - Dry mouth [Not Recovered/Not Resolved]
  - Decreased appetite [Unknown]
